FAERS Safety Report 17715706 (Version 4)
Quarter: 2021Q2

REPORT INFORMATION
  Report Type: Spontaneous
  Country: JP (occurrence: JP)
  Receive Date: 20200427
  Receipt Date: 20210517
  Transmission Date: 20210716
  Serious: Yes (Hospitalization, Other)
  Sender: FDA-Public Use
  Company Number: JP-AMGEN-JPNSP2020067618

PATIENT
  Age: 70 Year
  Sex: Female
  Weight: 60.5 kg

DRUGS (44)
  1. ROCALTROL [Concomitant]
     Active Substance: CALCITRIOL
     Dosage: 1 UG, Q56H
     Route: 065
     Dates: start: 20190730, end: 20190907
  2. PRECIPITATED CALCIUM CARBONATE [Concomitant]
     Active Substance: CALCIUM CARBONATE
     Dosage: 500 MG, EVERYDAY
     Route: 048
     Dates: start: 20210227
  3. EPOGIN [Concomitant]
     Active Substance: ERYTHROPOIETIN
     Dosage: 6000 IU, QW
     Route: 065
     Dates: start: 20200917, end: 20210323
  4. EPOGIN [Concomitant]
     Active Substance: ERYTHROPOIETIN
     Dosage: 4500 IU, QW
     Route: 065
     Dates: start: 20210325
  5. FESIN [SACCHARATED IRON OXIDE] [Concomitant]
     Active Substance: IRON SUCROSE
     Dosage: 80 MILLIGRAM, QWK
     Route: 042
     Dates: start: 20190410, end: 20190420
  6. FESIN [SACCHARATED IRON OXIDE] [Concomitant]
     Active Substance: IRON SUCROSE
     Dosage: 80 MILLIGRAM, QWK
     Route: 042
     Dates: start: 20200411, end: 20200421
  7. FESIN [SACCHARATED IRON OXIDE] [Concomitant]
     Active Substance: IRON SUCROSE
     Dosage: 80 MILLIGRAM, QWK
     Route: 042
     Dates: start: 20200613, end: 20200623
  8. PARSABIV [Suspect]
     Active Substance: ETELCALCETIDE HYDROCHLORIDE
     Indication: HYPERPARATHYROIDISM SECONDARY
     Dosage: 5 MG, Q56H
     Route: 010
     Dates: start: 20190608, end: 20190629
  9. KIKLIN [Concomitant]
     Active Substance: BIXALOMER
     Dosage: 1500 MG, EVERYDAY
     Route: 048
     Dates: start: 20200625
  10. PRECIPITATED CALCIUM CARBONATE [Concomitant]
     Active Substance: CALCIUM CARBONATE
     Dosage: 1000 MG, EVERYDAY
     Route: 048
     Dates: end: 20190823
  11. FESIN [SACCHARATED IRON OXIDE] [Concomitant]
     Active Substance: IRON SUCROSE
     Dosage: 80 MG, QW
     Route: 042
     Dates: start: 20200512, end: 20200522
  12. FESIN [SACCHARATED IRON OXIDE] [Concomitant]
     Active Substance: IRON SUCROSE
     Dosage: 80 MILLIGRAM, QWK
     Route: 042
     Dates: start: 20201114, end: 20201124
  13. ORKEDIA [Concomitant]
     Active Substance: EVOCALCET
     Dosage: 2 MG, EVERYDAY
     Route: 048
     Dates: start: 20200130, end: 20210217
  14. NESP [Concomitant]
     Active Substance: DARBEPOETIN ALFA
     Dosage: 20 UG, QW
     Route: 065
     Dates: start: 20200317, end: 20200317
  15. FESIN [SACCHARATED IRON OXIDE] [Concomitant]
     Active Substance: IRON SUCROSE
     Dosage: 80 MILLIGRAM, QWK
     Route: 042
     Dates: start: 20210109, end: 20210119
  16. ORKEDIA [Concomitant]
     Active Substance: EVOCALCET
     Dosage: 1 MG, EVERYDAY
     Route: 048
     Dates: start: 20191130, end: 20200129
  17. KIKLIN [Concomitant]
     Active Substance: BIXALOMER
     Dosage: 750 MG, EVERYDAY
     Route: 048
     Dates: end: 20190924
  18. KIKLIN [Concomitant]
     Active Substance: BIXALOMER
     Dosage: 750 MG, EVERYDAY
     Route: 048
     Dates: start: 20200423, end: 20200624
  19. EPOGIN [Concomitant]
     Active Substance: ERYTHROPOIETIN
     Dosage: 4500 IU, QW
     Route: 065
     Dates: start: 20190411, end: 20190806
  20. EPOGIN [Concomitant]
     Active Substance: ERYTHROPOIETIN
     Dosage: 6000 IU, QW
     Route: 065
     Dates: start: 20190808, end: 20191112
  21. EPOGIN [Concomitant]
     Active Substance: ERYTHROPOIETIN
     Dosage: 7500 IU, QW
     Route: 065
     Dates: start: 20191114, end: 20191126
  22. ALFAROL [Concomitant]
     Active Substance: ALFACALCIDOL
     Dosage: 0.5 UG, EVERYDAY
     Route: 048
     Dates: start: 20190910, end: 20191113
  23. FESIN [SACCHARATED IRON OXIDE] [Concomitant]
     Active Substance: IRON SUCROSE
     Dosage: 80 MILLIGRAM, QWK
     Route: 042
     Dates: start: 20200208, end: 20200218
  24. FESIN [SACCHARATED IRON OXIDE] [Concomitant]
     Active Substance: IRON SUCROSE
     Dosage: 80 MILLIGRAM, QWK
     Route: 042
     Dates: start: 20210327, end: 20210406
  25. PARSABIV [Suspect]
     Active Substance: ETELCALCETIDE HYDROCHLORIDE
     Dosage: 10 MG, Q56H
     Route: 010
     Dates: start: 20190713, end: 20190917
  26. PRECIPITATED CALCIUM CARBONATE [Concomitant]
     Active Substance: CALCIUM CARBONATE
     Dosage: 1500 MG, EVERYDAY
     Route: 048
     Dates: start: 20190824, end: 20191008
  27. PRECIPITATED CALCIUM CARBONATE [Concomitant]
     Active Substance: CALCIUM CARBONATE
     Dosage: 500 MG, EVERYDAY
     Route: 048
     Dates: start: 20191009, end: 20191111
  28. EPOGIN [Concomitant]
     Active Substance: ERYTHROPOIETIN
     Dosage: 9000 IU, QW
     Route: 065
     Dates: start: 20191128, end: 20200609
  29. EPOGIN [Concomitant]
     Active Substance: ERYTHROPOIETIN
     Dosage: 6000 IU, QW
     Route: 065
     Dates: start: 20200611, end: 20200707
  30. FESIN [SACCHARATED IRON OXIDE] [Concomitant]
     Active Substance: IRON SUCROSE
     Dosage: 80 MILLIGRAM, QWK
     Route: 042
     Dates: start: 20190810, end: 20190820
  31. FESIN [SACCHARATED IRON OXIDE] [Concomitant]
     Active Substance: IRON SUCROSE
     Dosage: 80 MILLIGRAM, QWK
     Route: 042
     Dates: start: 20191228, end: 20200107
  32. FESIN [SACCHARATED IRON OXIDE] [Concomitant]
     Active Substance: IRON SUCROSE
     Dosage: 80 MILLIGRAM, QWK
     Route: 042
     Dates: start: 20200919, end: 20200929
  33. ORKEDIA [Concomitant]
     Active Substance: EVOCALCET
     Dosage: 2 MG, EVERYDAY
     Route: 048
     Dates: start: 20190430, end: 20190605
  34. ORKEDIA [Concomitant]
     Active Substance: EVOCALCET
     Dosage: 4 MG, EVERYDAY
     Route: 048
     Dates: start: 20210218
  35. NESP [Concomitant]
     Active Substance: DARBEPOETIN ALFA
     Dosage: 40 UG, QW
     Route: 065
     Dates: start: 20200319, end: 20200511
  36. NESP [Concomitant]
     Active Substance: DARBEPOETIN ALFA
     Dosage: 20 UG, QW
     Route: 065
     Dates: start: 20200513, end: 20200525
  37. ROCALTROL [Concomitant]
     Active Substance: CALCITRIOL
     Dosage: 0.5 UG, Q56H
     Route: 065
     Dates: end: 20190727
  38. EPOGIN [Concomitant]
     Active Substance: ERYTHROPOIETIN
     Dosage: 7500 IU, QW
     Route: 065
     Dates: end: 20190410
  39. EPOGIN [Concomitant]
     Active Substance: ERYTHROPOIETIN
     Dosage: 4500 IU, QW
     Route: 065
     Dates: start: 20200709, end: 20200915
  40. FESIN [SACCHARATED IRON OXIDE] [Concomitant]
     Active Substance: IRON SUCROSE
     Dosage: 80 MILLIGRAM, QWK
     Route: 042
     Dates: start: 20190518, end: 20190528
  41. FESIN [SACCHARATED IRON OXIDE] [Concomitant]
     Active Substance: IRON SUCROSE
     Dosage: 80 MILLIGRAM, QWK
     Route: 042
     Dates: start: 20200317, end: 20200327
  42. PARSABIV [Suspect]
     Active Substance: ETELCALCETIDE HYDROCHLORIDE
     Dosage: 10 MG, Q56H
     Route: 010
     Dates: start: 20190702, end: 20190706
  43. PARSABIV [Suspect]
     Active Substance: ETELCALCETIDE HYDROCHLORIDE
     Dosage: 5 MG, Q56H
     Route: 010
     Dates: start: 20190708, end: 20190711
  44. NESP [Concomitant]
     Active Substance: DARBEPOETIN ALFA
     Dosage: 20 UG, QW
     Route: 065
     Dates: start: 20200111, end: 20200204

REACTIONS (3)
  - Eczema [Recovered/Resolved]
  - Gastric ulcer haemorrhage [Recovered/Resolved]
  - Diarrhoea [Recovered/Resolved]

NARRATIVE: CASE EVENT DATE: 20190718
